FAERS Safety Report 26132078 (Version 1)
Quarter: 2025Q4

REPORT INFORMATION
  Report Type: Spontaneous
  Country: RS (occurrence: RS)
  Receive Date: 20251208
  Receipt Date: 20251208
  Transmission Date: 20260117
  Serious: Yes (Other)
  Sender: MYLAN
  Company Number: RS-MYLANLABS-2025M1101139

PATIENT
  Age: 30 Year
  Sex: Male

DRUGS (17)
  1. CLOZAPINE [Suspect]
     Active Substance: CLOZAPINE
     Indication: Schizophrenia
     Dosage: 100 MILLIGRAM, TID
     Dates: start: 20240613, end: 20250304
  2. CLOZAPINE [Suspect]
     Active Substance: CLOZAPINE
     Dosage: 250 MILLIGRAM, QD (50MG+100MG+100MG)
     Dates: start: 20250304, end: 20250508
  3. CLOZAPINE [Suspect]
     Active Substance: CLOZAPINE
     Dosage: 100 MILLIGRAM, TID
     Dates: start: 20250508
  4. RISPERIDONE [Concomitant]
     Active Substance: RISPERIDONE
     Indication: Schizophrenia
     Dosage: 3 MILLIGRAM, QD
     Dates: start: 20240330, end: 20241017
  5. RISPERIDONE [Concomitant]
     Active Substance: RISPERIDONE
     Dosage: 2 MILLIGRAM, QD
     Dates: start: 20241017, end: 20241114
  6. RISPERIDONE [Concomitant]
     Active Substance: RISPERIDONE
     Dosage: 1 MILLIGRAM, QD
     Dates: start: 20241114, end: 20241212
  7. VALPROATE SODIUM [Concomitant]
     Active Substance: VALPROATE SODIUM
     Indication: Schizophrenia
     Dosage: UNK
     Dates: start: 20240221, end: 20240613
  8. VALPROATE SODIUM [Concomitant]
     Active Substance: VALPROATE SODIUM
     Dosage: 2500 MILLIGRAM, QD
     Dates: start: 20240613, end: 20250109
  9. VALPROATE SODIUM [Concomitant]
     Active Substance: VALPROATE SODIUM
     Dosage: 2000 MILLIGRAM, BID
     Dates: start: 20250109, end: 20250429
  10. VALPROATE SODIUM [Concomitant]
     Active Substance: VALPROATE SODIUM
     Dosage: 500 MILLIGRAM, BID
     Dates: start: 20250429
  11. LORAZEPAM [Concomitant]
     Active Substance: LORAZEPAM
     Indication: Schizophrenia
     Dosage: 2.5 MILLIGRAM, TID
     Dates: start: 20240613, end: 20240808
  12. LORAZEPAM [Concomitant]
     Active Substance: LORAZEPAM
     Dosage: 2.5 MILLIGRAM, TID
     Dates: start: 20240808, end: 20240912
  13. LORAZEPAM [Concomitant]
     Active Substance: LORAZEPAM
     Dosage: UNK (AS NEEDED)
     Dates: start: 20240912, end: 20250605
  14. LORAZEPAM [Concomitant]
     Active Substance: LORAZEPAM
     Dosage: 1.25 MILLIGRAM, TID
     Dates: start: 20250605, end: 20250904
  15. LORAZEPAM [Concomitant]
     Active Substance: LORAZEPAM
     Dosage: 2.5 MILLIGRAM, UNK
  16. CARIPRAZINE [Concomitant]
     Active Substance: CARIPRAZINE
     Indication: Schizophrenia
     Dosage: 1.5 MILLIGRAM, QD
     Dates: start: 20250220, end: 20250304
  17. CARIPRAZINE [Concomitant]
     Active Substance: CARIPRAZINE
     Dosage: 3 MILLIGRAM, AM
     Dates: start: 20250304, end: 20250909

REACTIONS (6)
  - Vision blurred [Unknown]
  - Weight increased [Unknown]
  - Dizziness [Unknown]
  - Somnolence [Unknown]
  - Palpitations [Unknown]
  - Muscle twitching [Unknown]

NARRATIVE: CASE EVENT DATE: 20250220
